FAERS Safety Report 25050311 (Version 2)
Quarter: 2025Q2

REPORT INFORMATION
  Report Type: Report from Study
  Country: BR (occurrence: BR)
  Receive Date: 20250307
  Receipt Date: 20250625
  Transmission Date: 20250716
  Serious: Yes (Other)
  Sender: TAKEDA
  Company Number: BR-TAKEDA-2024TUS107915

PATIENT
  Age: 58 Year
  Sex: Male

DRUGS (7)
  1. VEDOLIZUMAB [Suspect]
     Active Substance: VEDOLIZUMAB
     Indication: Colitis ulcerative
     Dosage: 300 MILLIGRAM, Q4WEEKS
     Dates: start: 20231204
  2. VEDOLIZUMAB [Suspect]
     Active Substance: VEDOLIZUMAB
  3. INFLIXIMAB [Suspect]
     Active Substance: INFLIXIMAB
     Indication: Colitis ulcerative
  4. SULFASALAZINE [Concomitant]
     Active Substance: SULFASALAZINE
     Dosage: 500 MILLIGRAM, Q6HR
  5. PREDNISOLONE [Concomitant]
     Active Substance: PREDNISOLONE
  6. LOSARTAN [Concomitant]
     Active Substance: LOSARTAN
     Indication: Hypertension
  7. MESALAMINE [Concomitant]
     Active Substance: MESALAMINE

REACTIONS (6)
  - Colitis ulcerative [Recovering/Resolving]
  - Drug ineffective [Unknown]
  - Inappropriate schedule of product administration [Recovered/Resolved]
  - Drug specific antibody present [Unknown]
  - Impaired work ability [Unknown]
  - Illness [Unknown]

NARRATIVE: CASE EVENT DATE: 20241120
